FAERS Safety Report 5378608-9 (Version None)
Quarter: 2007Q3

REPORT INFORMATION
  Report Type: 
  Country: None (occurrence: None)
  Receive Date: 20070705
  Receipt Date: 20070622
  Transmission Date: 20080115
  Serious: Yes (Disabling, Congenital Anomaly)
  Sender: FDA-Public Use
  Company Number: FR-ROCHE-504009

PATIENT
  Age: 1 Hour
  Sex: Male
  Weight: 1.6 kg

DRUGS (5)
  1. RIVOTRIL [Suspect]
     Dates: end: 20070131
  2. CARBAMAZEPINE [Suspect]
     Dates: end: 20070131
  3. EPITOMAX [Suspect]
     Dates: end: 20070131
  4. DI-HYDAN [Suspect]
     Dates: end: 20070131
  5. DEPAKENE [Concomitant]

REACTIONS (2)
  - CLEFT LIP [None]
  - MICROGNATHIA [None]
